FAERS Safety Report 7365941-4 (Version None)
Quarter: 2011Q1

REPORT INFORMATION
  Report Type: 
  Country: None (occurrence: None)
  Receive Date: 20110316
  Receipt Date: 20110316
  Transmission Date: 20110831
  Serious: Yes (Hospitalization)
  Sender: FDA-Public Use
  Company Number: None

PATIENT
  Sex: Female
  Weight: 68 kg

DRUGS (2)
  1. CARBOPLATIN [Suspect]
     Dosage: 952 MG
     Dates: end: 20110221
  2. TAXOL [Suspect]
     Dosage: 462 MG
     Dates: end: 20110221

REACTIONS (15)
  - CORONARY ARTERY DISEASE [None]
  - HEART RATE INCREASED [None]
  - HEART RATE IRREGULAR [None]
  - BLOOD PRESSURE DIASTOLIC DECREASED [None]
  - LOBAR PNEUMONIA [None]
  - ATRIAL FIBRILLATION [None]
  - CORONARY ARTERY OCCLUSION [None]
  - HAEMATOCRIT DECREASED [None]
  - OESOPHAGEAL PAIN [None]
  - WHITE BLOOD CELL COUNT DECREASED [None]
  - PLEURAL EFFUSION [None]
  - HAEMOGLOBIN DECREASED [None]
  - PLATELET COUNT DECREASED [None]
  - DIZZINESS POSTURAL [None]
  - NEUTROPHIL COUNT DECREASED [None]
